FAERS Safety Report 8962108 (Version 1)
Quarter: 2012Q4

REPORT INFORMATION
  Report Type: 
  Country: US (occurrence: US)
  Receive Date: 20121212
  Receipt Date: 20121212
  Transmission Date: 20130627
  Serious: No
  Sender: FDA-Public Use
  Company Number: US-PFIZER INC-2012271528

PATIENT
  Age: 45 Year
  Sex: Male
  Weight: 88.44 kg

DRUGS (3)
  1. PRISTIQ [Suspect]
     Indication: DEPRESSION
     Dosage: 50 mg, daily
     Route: 048
     Dates: start: 20121018, end: 20121019
  2. DEPO-TESTOSTERONE [Concomitant]
     Dosage: UNK
  3. WELLBUTRIN [Concomitant]
     Dosage: 100 mg, 2x/day
     Dates: end: 20121015

REACTIONS (3)
  - Influenza like illness [Recovered/Resolved]
  - Dizziness [Recovered/Resolved]
  - Fatigue [Recovered/Resolved]
